FAERS Safety Report 15793322 (Version 1)
Quarter: 2019Q1

REPORT INFORMATION
  Report Type: Spontaneous
  Country: US (occurrence: US)
  Receive Date: 20190103
  Receipt Date: 20190103
  Transmission Date: 20190417
  Serious: No
  Sender: FDA-Public Use
  Company Number: None

PATIENT

DRUGS (1)
  1. FENTANYL 10MCG/ML [Suspect]
     Active Substance: FENTANYL
     Dosage: ?          OTHER STRENGTH:10 MCG/ML;?
     Route: 042

REACTIONS (1)
  - Product label confusion [None]
